FAERS Safety Report 21573473 (Version 2)
Quarter: 2023Q1

REPORT INFORMATION
  Report Type: Spontaneous
  Country: US (occurrence: US)
  Receive Date: 20221109
  Receipt Date: 20230124
  Transmission Date: 20230417
  Serious: No
  Sender: FDA-Public Use
  Company Number: US-SA-SAC20221103001936

PATIENT
  Age: 41 Year
  Sex: Male

DRUGS (2)
  1. DUPIXENT [Suspect]
     Active Substance: DUPILUMAB
     Indication: Eosinophilic oesophagitis
     Dosage: 300 MG, QOW
     Route: 058
     Dates: start: 20210715
  2. DUPIXENT [Suspect]
     Active Substance: DUPILUMAB
     Dosage: 300 MG, QW
     Route: 058
     Dates: start: 2022

REACTIONS (8)
  - Mouth ulceration [Unknown]
  - Dry eye [Unknown]
  - Fatigue [Unknown]
  - Vertigo [Unknown]
  - Ear disorder [Unknown]
  - Asthenia [Unknown]
  - Pain [Unknown]
  - Inappropriate schedule of product administration [Unknown]
